FAERS Safety Report 13439172 (Version 1)
Quarter: 2017Q2

REPORT INFORMATION
  Report Type: Spontaneous
  Country: AU (occurrence: AU)
  Receive Date: 20170412
  Receipt Date: 20170412
  Transmission Date: 20170830
  Serious: Yes (Other)
  Sender: FDA-Public Use
  Company Number: AU-BAUSCH-BL-2017-009466

PATIENT
  Sex: Female

DRUGS (1)
  1. METRONIDAZOLE. [Suspect]
     Active Substance: METRONIDAZOLE
     Indication: PRODUCT USED FOR UNKNOWN INDICATION
     Route: 065

REACTIONS (12)
  - Computerised tomogram abnormal [Unknown]
  - Subdural empyema [Unknown]
  - Nuclear magnetic resonance imaging brain abnormal [Unknown]
  - Ophthalmic vein thrombosis [Unknown]
  - Citrobacter infection [Unknown]
  - Pyrexia [Unknown]
  - Somnolence [Unknown]
  - Drug ineffective [Unknown]
  - Eye swelling [Unknown]
  - Cellulitis orbital [Unknown]
  - Erythema [Unknown]
  - Drug resistance [Unknown]
